FAERS Safety Report 9891454 (Version 1)
Quarter: 2014Q1

REPORT INFORMATION
  Report Type: Spontaneous
  Country: CA (occurrence: CA)
  Receive Date: 20140212
  Receipt Date: 20140212
  Transmission Date: 20141002
  Serious: Yes (Hospitalization)
  Sender: FDA-Public Use
  Company Number: CA-JNJFOC-20140203656

PATIENT
  Age: 41 Year
  Sex: Male

DRUGS (3)
  1. INFLIXIMAB, RECOMBINANT [Suspect]
     Indication: COLITIS ULCERATIVE
     Route: 042
  2. AZATHIOPRINE [Concomitant]
     Route: 065
  3. MESALAZINE [Concomitant]
     Route: 065

REACTIONS (3)
  - Pericarditis [Unknown]
  - Cardiac tamponade [Recovered/Resolved]
  - Lupus-like syndrome [Recovered/Resolved]
